FAERS Safety Report 15329706 (Version 1)
Quarter: 2018Q3

REPORT INFORMATION
  Report Type: Spontaneous
  Country: IE (occurrence: IE)
  Receive Date: 20180829
  Receipt Date: 20180829
  Transmission Date: 20181010
  Serious: Yes (Death, Hospitalization)
  Sender: FDA-Public Use
  Company Number: IE-ROCHE-2173367

PATIENT
  Age: 47 Year
  Sex: Male

DRUGS (8)
  1. NICORETTE [Concomitant]
     Active Substance: NICOTINE
     Indication: EX-TOBACCO USER
     Route: 061
  2. CYCLIZINE [Concomitant]
     Active Substance: CYCLIZINE
     Route: 065
  3. PALEXIA [Concomitant]
     Active Substance: TAPENTADOL HYDROCHLORIDE
     Indication: PAIN
     Route: 048
     Dates: start: 201805
  4. LYRICA [Concomitant]
     Active Substance: PREGABALIN
     Indication: PAIN
     Route: 048
  5. OXYNORM [Concomitant]
     Active Substance: OXYCODONE HYDROCHLORIDE
     Dosage: 10?15 MG
     Route: 065
  6. ABSTRAL [Concomitant]
     Active Substance: FENTANYL CITRATE
     Route: 060
  7. TECENTRIQ [Suspect]
     Active Substance: ATEZOLIZUMAB
     Indication: NON-SMALL CELL LUNG CANCER STAGE IV
     Route: 042
     Dates: start: 20180430, end: 20180522
  8. FENTANYL. [Concomitant]
     Active Substance: FENTANYL
     Indication: PAIN
     Dosage: 75 MCG/H
     Route: 065

REACTIONS (5)
  - Atrial flutter [Recovered/Resolved]
  - Pulmonary sepsis [Recovered/Resolved]
  - Sepsis [Recovered/Resolved with Sequelae]
  - Non-small cell lung cancer [Fatal]
  - Small intestinal obstruction [Fatal]

NARRATIVE: CASE EVENT DATE: 20180509
